FAERS Safety Report 6408103-7 (Version None)
Quarter: 2009Q4

REPORT INFORMATION
  Report Type: 
  Country: None (occurrence: None)
  Receive Date: 20091013
  Receipt Date: 20090925
  Transmission Date: 20100525
  Serious: Yes (Hospitalization, Disabling)
  Sender: FDA-Public Use
  Company Number: B0423533A

PATIENT
  Sex: Female
  Weight: 69.8539 kg

DRUGS (6)
  1. EPIVIR [Suspect]
     Indication: HIV INFECTION
     Dosage: 150 MG/ TWICE PER DAY/ ORAL
     Route: 048
     Dates: start: 20041025, end: 20051113
  2. STAVUDINE [Suspect]
     Indication: HIV INFECTION
     Dosage: 60 MG/ D
     Dates: start: 20041025, end: 20051113
  3. EFAVIRENZ [Concomitant]
  4. TRUVADA [Concomitant]
  5. FLUCONAZOLE [Concomitant]
  6. ETHAMBUTOL HYDROCHLORIDE [Concomitant]

REACTIONS (24)
  - ASPARTATE AMINOTRANSFERASE INCREASED [None]
  - ATYPICAL MYCOBACTERIAL LYMPHADENITIS [None]
  - BLOOD ALKALINE PHOSPHATASE INCREASED [None]
  - COUGH [None]
  - EYE INFLAMMATION [None]
  - GASTROINTESTINAL DISORDER [None]
  - HAEMOGLOBIN DECREASED [None]
  - HEPATOMEGALY [None]
  - HYPOALBUMINAEMIA [None]
  - HYPOPROTEINAEMIA [None]
  - IMMUNE RECONSTITUTION SYNDROME [None]
  - LUNG DISORDER [None]
  - LYMPHANGIECTASIA INTESTINAL [None]
  - LYMPHOCYTE PERCENTAGE DECREASED [None]
  - MYCOBACTERIUM AVIUM COMPLEX INFECTION [None]
  - NAUSEA [None]
  - OEDEMA PERIPHERAL [None]
  - PYREXIA [None]
  - SKIN LESION [None]
  - SPLENOMEGALY [None]
  - UVEITIS [None]
  - VISUAL ACUITY REDUCED [None]
  - VITREOUS OPACITIES [None]
  - WHITE BLOOD CELL COUNT DECREASED [None]
